FAERS Safety Report 9169305 (Version 1)
Quarter: 2013Q1

REPORT INFORMATION
  Report Type: Report from Study
  Country: BR (occurrence: BR)
  Receive Date: 20130318
  Receipt Date: 20130318
  Transmission Date: 20140127
  Serious: Yes (Other)
  Sender: FDA-Public Use
  Company Number: BR-ACTELION-A-CH2013-80576

PATIENT
  Age: 17 Year
  Sex: Female

DRUGS (2)
  1. TRACLEER [Suspect]
     Indication: PULMONARY ARTERIAL HYPERTENSION
     Dosage: 125 MG, BID
     Route: 048
  2. CERAZETTE [Concomitant]

REACTIONS (4)
  - Metrorrhagia [Unknown]
  - Abdominal pain upper [Unknown]
  - Groin pain [Recovered/Resolved]
  - Inguinal mass [Unknown]
